FAERS Safety Report 10570295 (Version 1)
Quarter: 2014Q4

REPORT INFORMATION
  Report Type: Spontaneous
  Country: US (occurrence: None)
  Receive Date: 20141106
  Receipt Date: 20141106
  Transmission Date: 20150529
  Serious: No
  Sender: FDA-Public Use
  Company Number: None

PATIENT
  Age: 54 Year
  Sex: Female
  Weight: 63.05 kg

DRUGS (2)
  1. SEROQUEL [Suspect]
     Active Substance: QUETIAPINE FUMARATE
     Indication: INSOMNIA
     Route: 048
     Dates: start: 20110601, end: 20141105
  2. SEROQUEL [Suspect]
     Active Substance: QUETIAPINE FUMARATE
     Indication: ANXIETY
     Route: 048
     Dates: start: 20110601, end: 20141105

REACTIONS (14)
  - Headache [None]
  - Feeling abnormal [None]
  - Hypoaesthesia [None]
  - Nasopharyngitis [None]
  - Insomnia [None]
  - Disturbance in attention [None]
  - Vision blurred [None]
  - Anxiety [None]
  - Paraesthesia [None]
  - Musculoskeletal stiffness [None]
  - Amnesia [None]
  - Terminal insomnia [None]
  - Pruritus [None]
  - Abnormal dreams [None]

NARRATIVE: CASE EVENT DATE: 20141103
